FAERS Safety Report 9322564 (Version 1)
Quarter: 2013Q2

REPORT INFORMATION
  Report Type: Spontaneous
  Country: FR (occurrence: FR)
  Receive Date: 20130531
  Receipt Date: 20130531
  Transmission Date: 20140414
  Serious: Yes (Hospitalization)
  Sender: FDA-Public Use
  Company Number: FR-PFIZER INC-2013161613

PATIENT
  Age: 54 Year
  Sex: Male

DRUGS (3)
  1. ZITHROMAX [Suspect]
     Indication: COUGH
     Dosage: UNK
     Route: 048
     Dates: start: 20130131, end: 20130214
  2. PREVISCAN [Interacting]
     Indication: ATRIAL FIBRILLATION
     Dosage: UNK
     Route: 048
     Dates: start: 201204
  3. AMOXICILLIN [Concomitant]
     Indication: COUGH
     Dosage: 2 G PER DAY
     Dates: start: 20130114, end: 20130119

REACTIONS (3)
  - Haematoma [Recovering/Resolving]
  - International normalised ratio increased [Recovered/Resolved]
  - Drug interaction [Recovering/Resolving]
